FAERS Safety Report 4452799-6 (Version None)
Quarter: 2004Q3

REPORT INFORMATION
  Report Type: 
  Country: None (occurrence: None)
  Receive Date: 20040916
  Receipt Date: 20040913
  Transmission Date: 20050211
  Serious: Yes (Hospitalization, Other)
  Sender: FDA-Public Use
  Company Number: FRWYE037714SEP04

PATIENT
  Age: 40 Year
  Sex: Male

DRUGS (7)
  1. OXAZEPAM [Suspect]
     Route: 048
     Dates: end: 20040524
  2. EQUANIL [Suspect]
     Dosage: 400 MG 1X PER 1 DAY
     Route: 048
     Dates: end: 20040524
  3. IMOVANE (ZOPICLONE) [Suspect]
     Dosage: 7.5 MG 1X PER 1 DAY
     Route: 048
     Dates: end: 20040524
  4. INVIRASE [Concomitant]
  5. COMBIVIR [Concomitant]
  6. TERCIAN (CYAMEMAZINE) [Concomitant]
  7. BUPRENORPHINE (BUPRENORPHINE) [Concomitant]

REACTIONS (4)
  - CONFUSIONAL STATE [None]
  - DEHYDRATION [None]
  - DRUG ABUSER [None]
  - OVERDOSE [None]
